FAERS Safety Report 17923627 (Version 1)
Quarter: 2020Q2

REPORT INFORMATION
  Report Type: Spontaneous
  Country: CA (occurrence: CA)
  Receive Date: 20200622
  Receipt Date: 20200622
  Transmission Date: 20200714
  Serious: Yes (Other)
  Sender: FDA-Public Use
  Company Number: CA-TEVA-2020-CA-1789852

PATIENT
  Age: 37 Year
  Sex: Female

DRUGS (2)
  1. MESALAZINE [Suspect]
     Active Substance: MESALAMINE
     Indication: GASTROINTESTINAL HAEMORRHAGE
     Route: 065
  2. HUMIRA [Suspect]
     Active Substance: ADALIMUMAB
     Dosage: 40 MG, 1 EVERY 1 WEEK ,SOLUTION SUBCUTANEOUS
     Route: 058

REACTIONS (6)
  - Nephrolithiasis [Not Recovered/Not Resolved]
  - Lymphoma [Not Recovered/Not Resolved]
  - Splenic lesion [Not Recovered/Not Resolved]
  - Gastrointestinal haemorrhage [Not Recovered/Not Resolved]
  - Abdominal discomfort [Not Recovered/Not Resolved]
  - Malignant splenic neoplasm [Not Recovered/Not Resolved]
